FAERS Safety Report 23993687 (Version 3)
Quarter: 2024Q3

REPORT INFORMATION
  Report Type: Other
  Country: ES (occurrence: ES)
  Receive Date: 20240620
  Receipt Date: 20240718
  Transmission Date: 20241017
  Serious: Yes (Death, Hospitalization, Other)
  Sender: MACLEODS
  Company Number: ES-UCBSA-2023054512

PATIENT

DRUGS (4)
  1. LACOSAMIDE [Suspect]
     Active Substance: LACOSAMIDE
     Indication: Epilepsy
     Route: 065
  2. KEPPRA [Suspect]
     Active Substance: LEVETIRACETAM
     Indication: Epilepsy
     Dosage: UNK
     Route: 065
  3. DEXAMETHASONE ACETATE [Suspect]
     Active Substance: DEXAMETHASONE ACETATE
     Indication: Epilepsy
     Route: 065
  4. PEMAZYRE [Concomitant]
     Active Substance: PEMIGATINIB
     Indication: Glioblastoma
     Dosage: 13.5 MILLIGRAM, ONCE DAILY (QD)
     Route: 048
     Dates: start: 20230928, end: 20231103

REACTIONS (4)
  - Disease progression [Fatal]
  - Glioblastoma [Fatal]
  - Drug withdrawal convulsions [Recovered/Resolved]
  - Off label use [Unknown]

NARRATIVE: CASE EVENT DATE: 20231029
